FAERS Safety Report 20134314 (Version 1)
Quarter: 2021Q4

REPORT INFORMATION
  Report Type: Spontaneous
  Country: BR (occurrence: BR)
  Receive Date: 20211201
  Receipt Date: 20211201
  Transmission Date: 20220303
  Serious: Yes (Other)
  Sender: FDA-Public Use
  Company Number: None

PATIENT
  Age: 76 Year
  Sex: Female
  Weight: 62.8 kg

DRUGS (5)
  1. DESLORATADINE [Suspect]
     Active Substance: DESLORATADINE
     Dosage: 8 PILLS
  2. BUDESONIDE\FORMOTEROL FUMARATE [Suspect]
     Active Substance: BUDESONIDE\FORMOTEROL FUMARATE
     Indication: Bronchitis chronic
     Dosage: 60+60 CAPSULES, TWICE TO THREE TIMES A DAY
  3. BUDESONIDE\FORMOTEROL FUMARATE [Suspect]
     Active Substance: BUDESONIDE\FORMOTEROL FUMARATE
     Indication: Asthma
     Dosage: UNKNOWN DOSE, TWICE A DAY
  4. AMINOPHYLLINE [Concomitant]
     Active Substance: AMINOPHYLLINE
     Dosage: UNK
  5. ESOMEPRAZOLE MAGNESIUM [Concomitant]
     Active Substance: ESOMEPRAZOLE MAGNESIUM
     Dosage: UNK

REACTIONS (18)
  - Drug ineffective [Unknown]
  - Drug ineffective [Unknown]
  - Illness [Unknown]
  - Lung disorder [Unknown]
  - Cardiac disorder [Unknown]
  - Breath sounds abnormal [Unknown]
  - Feeling hot [Unknown]
  - Speech disorder [Unknown]
  - Wheezing [Unknown]
  - Dysphonia [Unknown]
  - Hypersensitivity [Unknown]
  - Aphonia [Unknown]
  - Gait inability [Unknown]
  - Pruritus [Unknown]
  - Choking [Unknown]
  - Diverticulitis [Unknown]
  - Dyspnoea [Not Recovered/Not Resolved]
  - Arrhythmia [Unknown]

NARRATIVE: CASE EVENT DATE: 20210210
